FAERS Safety Report 23426554 (Version 2)
Quarter: 2024Q1

REPORT INFORMATION
  Report Type: Spontaneous
  Country: DE (occurrence: DE)
  Receive Date: 20240122
  Receipt Date: 20240229
  Transmission Date: 20240410
  Serious: Yes (Hospitalization, Other)
  Sender: FDA-Public Use
  Company Number: DE-KRKA-DE2023K07524STU

PATIENT

DRUGS (29)
  1. LENALIDOMIDE [Suspect]
     Active Substance: LENALIDOMIDE
     Indication: Plasma cell myeloma
     Dosage: 20 MILLIGRAM, QD, 20 MG, PER DAY ON CYCLE DAYS 1-21 OF A 21 DAYS LONG CYCLE
     Route: 048
     Dates: start: 20230330, end: 202305
  2. LENALIDOMIDE [Suspect]
     Active Substance: LENALIDOMIDE
     Dosage: 15 MILLIGRAM, QD, 15 MG PER DAY ON CYCLE DAYS 1-21 OF A 21 DAYS LONG CYCLE
     Route: 048
     Dates: start: 202305, end: 20230509
  3. LENALIDOMIDE [Suspect]
     Active Substance: LENALIDOMIDE
     Dosage: 15 MILLIGRAM, QD, 15 MG PER DAY ON CYCLE DAYS 1-21 OF A 21 DAYS LONG CYCLE
     Route: 048
     Dates: start: 20230717, end: 20240116
  4. LENALIDOMIDE [Suspect]
     Active Substance: LENALIDOMIDE
     Dosage: 10 MILLIGRAM, QD, 10 MG PER DAY ON CYCLE DAYS 1-21 OF A 21 DAYS LONG CYCLE
     Route: 048
     Dates: start: 20240117
  5. DEXAMETHASONE [Suspect]
     Active Substance: DEXAMETHASONE
     Indication: Plasma cell myeloma
     Dosage: 20 MILLIGRAM, QD (20 MG, PER DAY ON CYCLE DAYS 1, 2, 8, 9, 15, 16, 22, 23 OF A 21 DAYS LONG CYCLE)
     Route: 048
     Dates: start: 20230330, end: 20230726
  6. DEXAMETHASONE [Suspect]
     Active Substance: DEXAMETHASONE
     Dosage: 20 MILLIGRAM, QD, 20 PER DAY ON CYCLE DAYS 1, 2, 8, 15, 22 OF A 21 DAYS LONG CYCLE
     Route: 048
     Dates: start: 20231025
  7. DEXAMETHASONE [Suspect]
     Active Substance: DEXAMETHASONE
     Dosage: 20 MILLIGRAM, QD, PER DAY ON CYCLE DAYS 1, 2, 8, 15, 16, 22 OF A 21 DAYS LONG CYCLE
     Route: 048
     Dates: end: 20231018
  8. DARATUMUMAB [Suspect]
     Active Substance: DARATUMUMAB
     Indication: Plasma cell myeloma
     Dosage: 1800 MILLIGRAM PER DAY ON DAY 1 OF A 21 DAY LONG CYCLE
     Route: 065
     Dates: start: 20231025
  9. DARATUMUMAB [Suspect]
     Active Substance: DARATUMUMAB
     Dosage: 1822 MILLIGRAM,  PER DAY ON DAY 1 OF A 21 DAY LONG CYCLE
     Route: 058
     Dates: start: 20230523
  10. DARATUMUMAB [Suspect]
     Active Substance: DARATUMUMAB
     Dosage: 1800 MILLIGRAM,  PER DAY ON DAY 1 OF A 21 DAY LONG CYCLE
     Route: 058
     Dates: start: 20230330
  11. TORSEMIDE [Suspect]
     Active Substance: TORSEMIDE
     Indication: Product used for unknown indication
     Dosage: UNK
     Route: 065
  12. ACETAMINOPHEN [Concomitant]
     Active Substance: ACETAMINOPHEN
     Indication: Product used for unknown indication
     Dosage: 500 MILLIGRAM
     Route: 065
  13. PANTOPRAZOLE [Concomitant]
     Active Substance: PANTOPRAZOLE
     Indication: Product used for unknown indication
     Dosage: UNK
     Route: 065
  14. LERCANIDIPINE [Concomitant]
     Active Substance: LERCANIDIPINE
     Indication: Product used for unknown indication
     Dosage: 10 MILLIGRAM
     Route: 065
  15. CALCIUM CARBONATE\CHOLECALCIFEROL [Concomitant]
     Active Substance: CALCIUM CARBONATE\CHOLECALCIFEROL
     Indication: Product used for unknown indication
     Dosage: UNK
     Route: 065
  16. DIGOXIN [Concomitant]
     Active Substance: DIGOXIN
     Indication: Product used for unknown indication
     Dosage: UNK
     Route: 065
  17. MONTELUKAST [Concomitant]
     Active Substance: MONTELUKAST SODIUM
     Indication: Product used for unknown indication
     Dosage: 10 MILLIGRAM
     Route: 065
  18. ELIQUIS [Concomitant]
     Active Substance: APIXABAN
     Indication: Product used for unknown indication
     Dosage: 5 MILLIGRAM
     Route: 065
  19. COTRIM [Concomitant]
     Active Substance: SULFAMETHOXAZOLE\TRIMETHOPRIM
     Indication: Product used for unknown indication
     Dosage: 960 MILLIGRAM
     Route: 065
  20. CANDESARTAN [Concomitant]
     Active Substance: CANDESARTAN
     Indication: Product used for unknown indication
     Dosage: 16 MILLIGRAM, 16 MG, 1X PER DAY 1-0-0
     Route: 048
     Dates: start: 20230622
  21. DIMETHINDENE [Concomitant]
     Active Substance: DIMETHINDENE
     Indication: Product used for unknown indication
     Dosage: 1 MILLIGRAM
     Route: 065
  22. METOPROLOL SUCCINATE [Concomitant]
     Active Substance: METOPROLOL SUCCINATE
     Indication: Product used for unknown indication
     Dosage: 50 MILLIGRAM, 50 MG, 2X PER DAY 1.5-0-1.5
     Route: 048
     Dates: start: 20230622
  23. OSTEO [CALCIUM] [Concomitant]
     Indication: Product used for unknown indication
     Dosage: 500 MILLIGRAM, BID
     Route: 048
     Dates: start: 20230622
  24. ENOXAPARIN SODIUM [Concomitant]
     Active Substance: ENOXAPARIN SODIUM
     Indication: Product used for unknown indication
     Dosage: 1 DOSAGE FORM (40/0.4 MG/ML), 2XPER DAY
     Route: 058
     Dates: start: 20230623
  25. TORSEMIDE [Concomitant]
     Active Substance: TORSEMIDE
     Indication: Product used for unknown indication
     Dosage: 10 MILLIGRAM, 2X PER DAY
     Route: 048
     Dates: start: 20230627
  26. ACYCLOVIR [Concomitant]
     Active Substance: ACYCLOVIR
     Indication: Product used for unknown indication
     Dosage: 400 MILLIGRAM, 2X PER DAY
     Route: 048
     Dates: start: 20220622
  27. ALDACTONE [Concomitant]
     Active Substance: SPIRONOLACTONE
     Indication: Product used for unknown indication
     Dosage: 25 MILLIGRAM
     Route: 048
     Dates: start: 20230623
  28. MOVICOL [Concomitant]
     Active Substance: POLYETHYLENE GLYCOL 3350\POTASSIUM CHLORIDE\SODIUM BICARBONATE\SODIUM CHLORIDE
     Indication: Product used for unknown indication
     Dosage: 1 DOSAGE FORM (SACHET), 2X PER DAY
     Route: 048
  29. FRESUBIN ENERGY [CARBOHYDRATES NOS;FATS NOS;MINERALS NOS;PROTEINS NOS; [Concomitant]
     Indication: Product used for unknown indication
     Dosage: 1 DOSAGE FORM, 2X PER DAY
     Route: 048
     Dates: start: 20230622

REACTIONS (14)
  - Renal oncocytoma [Recovered/Resolved]
  - Calculus bladder [Recovered/Resolved]
  - Pneumonia [Recovered/Resolved]
  - Cardiac failure acute [Recovered/Resolved]
  - Fatigue [Recovered/Resolved]
  - Dyspnoea [Recovered/Resolved]
  - Neutropenia [Recovering/Resolving]
  - Malaise [Recovered/Resolved]
  - Leukopenia [Unknown]
  - Febrile neutropenia [Unknown]
  - Haemoglobin decreased [Recovered/Resolved]
  - White blood cell count decreased [Recovering/Resolving]
  - Vertigo [Recovering/Resolving]
  - Rash [Recovering/Resolving]

NARRATIVE: CASE EVENT DATE: 20230501
